FAERS Safety Report 7378747-7 (Version None)
Quarter: 2011Q1

REPORT INFORMATION
  Report Type: 
  Country: None (occurrence: None)
  Receive Date: 20110328
  Receipt Date: 20110322
  Transmission Date: 20110831
  Serious: Yes (Death)
  Sender: FDA-Public Use
  Company Number: US-ASTRAZENECA-2011SE16012

PATIENT
  Age: 68 Year
  Sex: Female

DRUGS (1)
  1. SEROQUEL [Suspect]
     Route: 048

REACTIONS (3)
  - SEPTIC SHOCK [None]
  - BIPOLAR DISORDER [None]
  - NEUROLEPTIC MALIGNANT SYNDROME [None]
